FAERS Safety Report 24289807 (Version 1)
Quarter: 2024Q3

REPORT INFORMATION
  Report Type: Spontaneous
  Country: DE (occurrence: DE)
  Receive Date: 20240906
  Receipt Date: 20240906
  Transmission Date: 20241017
  Serious: No
  Sender: ALKEM
  Company Number: None

PATIENT
  Age: 44 Year
  Sex: Male
  Weight: 96 kg

DRUGS (1)
  1. PREGABALIN [Suspect]
     Active Substance: PREGABALIN
     Indication: Intervertebral disc operation
     Dosage: 50 MILLIGRAM, BID (EVERY 0.5 DAY)
     Route: 048
     Dates: start: 20240115

REACTIONS (3)
  - Male sexual dysfunction [Unknown]
  - Anorgasmia [Unknown]
  - Fatigue [Unknown]
